FAERS Safety Report 7081005-1 (Version None)
Quarter: 2010Q4

REPORT INFORMATION
  Report Type: 
  Country: None (occurrence: None)
  Receive Date: 20101102
  Receipt Date: 20101102
  Transmission Date: 20110411
  Serious: Yes (Life-Threatening, Hospitalization)
  Sender: FDA-Public Use
  Company Number: None

PATIENT
  Age: 55 Year
  Sex: Male
  Weight: 110.7 kg

DRUGS (1)
  1. HYDROCHLOROTHIAZIDE/LISINOPRIL [Suspect]
     Indication: HYPERTENSION
     Dosage: 25/20 MG EVERY DAY PO
     Route: 048
     Dates: start: 20100201, end: 20101025

REACTIONS (5)
  - ANGIOEDEMA [None]
  - DYSPHAGIA [None]
  - LIP SWELLING [None]
  - NASAL CONGESTION [None]
  - PHARYNGEAL OEDEMA [None]
